FAERS Safety Report 7541043-9 (Version None)
Quarter: 2011Q2

REPORT INFORMATION
  Report Type: 
  Country: None (occurrence: None)
  Receive Date: 20110610
  Receipt Date: 20101124
  Transmission Date: 20111010
  Serious: No
  Sender: FDA-Public Use
  Company Number: A0896394A

PATIENT
  Age: 11 Month
  Sex: Male

DRUGS (2)
  1. ALTABAX [Suspect]
     Indication: INFECTION PROPHYLAXIS
     Dosage: 1APP PER DAY
     Route: 061
     Dates: start: 20101112, end: 20101112
  2. PREVACID [Concomitant]

REACTIONS (2)
  - GENITAL BURNING SENSATION [None]
  - PENILE ERYTHEMA [None]
